APPROVED DRUG PRODUCT: NORETHINDRONE AND ETHINYL ESTRADIOL AND FERROUS FUMARATE
Active Ingredient: ETHINYL ESTRADIOL; NORETHINDRONE
Strength: 0.025MG;0.8MG
Dosage Form/Route: TABLET, CHEWABLE;ORAL
Application: A203371 | Product #001 | TE Code: AB
Applicant: XIROMED LLC
Approved: Apr 23, 2014 | RLD: No | RS: No | Type: RX